FAERS Safety Report 9416523 (Version 1)
Quarter: 2013Q3

REPORT INFORMATION
  Report Type: Report from Study
  Country: US (occurrence: US)
  Receive Date: 20130724
  Receipt Date: 20130724
  Transmission Date: 20140515
  Serious: Yes (Hospitalization)
  Sender: FDA-Public Use
  Company Number: US-MYLANLABS-2013S1015741

PATIENT
  Age: 43 Year
  Sex: Male

DRUGS (5)
  1. MITOMYCIN [Suspect]
     Indication: APPENDIX CANCER
     Route: 033
  2. DOXORUBICIN [Suspect]
     Indication: APPENDIX CANCER
     Route: 033
  3. FLUOROURACIL [Suspect]
     Indication: APPENDIX CANCER
     Route: 033
  4. FLUOROURACIL [Concomitant]
     Indication: APPENDIX CANCER
     Route: 042
  5. FOLINIC ACID [Concomitant]
     Indication: APPENDIX CANCER
     Route: 042

REACTIONS (1)
  - Gastric perforation [Recovered/Resolved]
